FAERS Safety Report 7130487-5 (Version None)
Quarter: 2010Q4

REPORT INFORMATION
  Report Type: 
  Country: None (occurrence: None)
  Receive Date: 20101201
  Receipt Date: 20101118
  Transmission Date: 20110411
  Serious: Yes (Other)
  Sender: FDA-Public Use
  Company Number: PHHY2010FR75234

PATIENT
  Sex: Female

DRUGS (4)
  1. NISISCO [Suspect]
     Dosage: UNK
     Route: 048
     Dates: end: 19430324
  2. XANAX [Suspect]
     Dosage: UNK
     Route: 048
  3. PROZAC [Suspect]
     Dosage: UNK
     Route: 048
     Dates: end: 20090601
  4. ATARAX [Suspect]
     Dosage: UNK
     Route: 048

REACTIONS (1)
  - PSEUDOLYMPHOMA [None]
